FAERS Safety Report 25942780 (Version 3)
Quarter: 2025Q4

REPORT INFORMATION
  Report Type: Spontaneous
  Country: AR (occurrence: AR)
  Receive Date: 20251021
  Receipt Date: 20251103
  Transmission Date: 20260118
  Serious: Yes (Death)
  Sender: CELLTRION
  Company Number: AR-CELLTRION INC.-2025AR037863

PATIENT

DRUGS (2)
  1. RITUXIMAB [Suspect]
     Active Substance: RITUXIMAB
     Indication: Cardiac failure acute
  2. RITUXIMAB [Suspect]
     Active Substance: RITUXIMAB
     Indication: Systemic scleroderma

REACTIONS (2)
  - Death [Fatal]
  - Intentional product use issue [Unknown]
